FAERS Safety Report 10645331 (Version 1)
Quarter: 2014Q4

REPORT INFORMATION
  Report Type: Spontaneous
  Country: US (occurrence: None)
  Receive Date: 20141210
  Receipt Date: 20141210
  Transmission Date: 20150529
  Serious: No
  Sender: FDA-Public Use
  Company Number: None

PATIENT
  Age: 93 Year
  Sex: Male
  Weight: 59 kg

DRUGS (1)
  1. CEFEPIME [Suspect]
     Active Substance: CEFEPIME\CEFEPIME HYDROCHLORIDE
     Indication: SEIZURE
     Dosage: 2 GM, EVERY DAY, IV?
     Route: 042
     Dates: start: 20140913, end: 20140916

REACTIONS (2)
  - Chronic kidney disease [None]
  - Seizure [None]

NARRATIVE: CASE EVENT DATE: 20140916
